FAERS Safety Report 20813709 (Version 1)
Quarter: 2022Q2

REPORT INFORMATION
  Report Type: Report from Study
  Country: DE (occurrence: DE)
  Receive Date: 20220511
  Receipt Date: 20220511
  Transmission Date: 20220721
  Serious: Yes (Other)
  Sender: FDA-Public Use
  Company Number: DE-LEO Pharma-341383

PATIENT
  Age: 40 Year
  Sex: Male
  Weight: 109 kg

DRUGS (1)
  1. BRODALUMAB [Suspect]
     Active Substance: BRODALUMAB
     Indication: Psoriasis
     Dosage: 210 MG / PRE-FILLED SYRINGE
     Route: 058
     Dates: start: 20210330, end: 20211007

REACTIONS (1)
  - Lymphopenia [Not Recovered/Not Resolved]
